FAERS Safety Report 9618208 (Version 4)
Quarter: 2014Q4

REPORT INFORMATION
  Report Type: Report from Study
  Country: BR (occurrence: BR)
  Receive Date: 20131014
  Receipt Date: 20141119
  Transmission Date: 20150529
  Serious: Yes (Hospitalization, Other)
  Sender: FDA-Public Use
  Company Number: BR-BIOGENIDEC-2013BI099251

PATIENT
  Age: 51 Year
  Sex: Female

DRUGS (16)
  1. NEBILET [Concomitant]
     Active Substance: NEBIVOLOL
  2. SIMVASTATIN. [Concomitant]
     Active Substance: SIMVASTATIN
  3. PROPANOLOL [Concomitant]
     Active Substance: PROPRANOLOL HYDROCHLORIDE
  4. TENSALIV [Concomitant]
  5. SERTRALINE [Concomitant]
     Active Substance: SERTRALINE HYDROCHLORIDE
  6. DONAREN [Concomitant]
     Active Substance: TRAZODONE HYDROCHLORIDE
  7. AVONEX [Suspect]
     Active Substance: INTERFERON BETA-1A
     Indication: MULTIPLE SCLEROSIS
     Route: 030
     Dates: start: 20120601
  8. HYDROCHLOROTHIAZIDE. [Concomitant]
     Active Substance: HYDROCHLOROTHIAZIDE
  9. RIVOTRIL [Concomitant]
     Active Substance: CLONAZEPAM
     Indication: NERVOUSNESS
  10. AVONEX [Suspect]
     Active Substance: INTERFERON BETA-1A
     Indication: MULTIPLE SCLEROSIS
     Route: 030
     Dates: start: 20100220, end: 20120522
  11. ENALAPRIL [Concomitant]
     Active Substance: ENALAPRIL
  12. TORSILAX [Concomitant]
     Active Substance: ACETAMINOPHEN\CAFFEINE\CARISOPRODOL\DICLOFENAC
  13. AMITRIPTYLINE [Concomitant]
     Active Substance: AMITRIPTYLINE
  14. AMLODIPINE [Concomitant]
     Active Substance: AMLODIPINE BESYLATE
  15. ASA [Concomitant]
     Active Substance: ASPIRIN
  16. DORFLEX [Concomitant]
     Active Substance: CAFFEINE\DIPYRONE\ORPHENADRINE

REACTIONS (23)
  - Blood pressure increased [Recovered/Resolved]
  - Headache [Recovered/Resolved]
  - Nausea [Unknown]
  - Multiple sclerosis [Unknown]
  - Pain [Unknown]
  - Blood cholesterol increased [Unknown]
  - Loss of control of legs [Unknown]
  - Neck pain [Unknown]
  - Depression [Unknown]
  - Fall [Recovered/Resolved]
  - Vomiting [Unknown]
  - Diabetes mellitus [Unknown]
  - Glaucoma [Unknown]
  - Dizziness [Unknown]
  - Muscular weakness [Unknown]
  - Intervertebral disc protrusion [Unknown]
  - Hepatic steatosis [Not Recovered/Not Resolved]
  - Retinal tear [Unknown]
  - Ischaemic stroke [Recovered/Resolved]
  - Hemiparesis [Unknown]
  - Memory impairment [Unknown]
  - Abdominal distension [Unknown]
  - Dehydration [Unknown]

NARRATIVE: CASE EVENT DATE: 20130814
